FAERS Safety Report 8290033-X (Version None)
Quarter: 2012Q2

REPORT INFORMATION
  Report Type: 
  Country: None (occurrence: None)
  Receive Date: 20120417
  Receipt Date: 20120405
  Transmission Date: 20120825
  Serious: Yes (Other)
  Sender: FDA-Public Use
  Company Number: CA-JNJFOC-20120403062

PATIENT
  Sex: Female
  Weight: 100 kg

DRUGS (17)
  1. REMICADE [Suspect]
     Indication: COLITIS ULCERATIVE
     Route: 042
     Dates: start: 20120201
  2. COZAAR [Concomitant]
     Route: 065
  3. VITAMIN D W/ CALCIUM [Concomitant]
     Route: 065
  4. VOLTAREN-XR [Concomitant]
     Route: 065
  5. ESTROGEL [Concomitant]
     Route: 065
  6. WARFARIN SODIUM [Concomitant]
     Route: 065
  7. VENTOLIN [Concomitant]
     Route: 055
  8. EPIPEN [Concomitant]
     Route: 065
  9. LACTASE [Concomitant]
     Route: 065
  10. TOPAMAX [Concomitant]
     Route: 065
  11. SCOPOLAMINE [Concomitant]
     Route: 065
  12. SINGULAIR [Concomitant]
     Route: 065
  13. OMEPRAZOLE [Concomitant]
     Route: 065
  14. HYDROMORPHONE HCL [Concomitant]
     Route: 065
  15. DOXEPIN HCL [Concomitant]
     Route: 065
  16. DESLORATADINE [Concomitant]
     Route: 065
  17. PREDNISONE TAB [Concomitant]
     Route: 065

REACTIONS (3)
  - HIATUS HERNIA [None]
  - CHEST DISCOMFORT [None]
  - INFUSION RELATED REACTION [None]
